FAERS Safety Report 5134708-X (Version None)
Quarter: 2006Q4

REPORT INFORMATION
  Report Type: 
  Country: None (occurrence: None)
  Receive Date: 20061019
  Receipt Date: 20061011
  Transmission Date: 20070319
  Serious: Yes (Death, Hospitalization)
  Sender: FDA-Public Use
  Company Number: 163-C5013-06040385

PATIENT
  Age: 76 Year
  Sex: Female
  Weight: 55.7 kg

DRUGS (7)
  1. C-5013 (LENALIDOMIDE) (CAPSULES) REVLIMD [Suspect]
     Indication: MULTIPLE MYELOMA
     Dosage: 25 MG, DAYS 1-21 OF 28D CYCLE, ORAL
     Route: 048
     Dates: start: 20060320, end: 20060407
  2. DEXAMETHASONE TAB [Suspect]
     Indication: MULTIPLE MYELOMA
     Dosage: 40 MG, DAYS 1-4, 9-12, 17-20 OF 28D CYCLE, ORAL
     Route: 048
     Dates: start: 20060320, end: 20060407
  3. SENNA [Concomitant]
  4. METHADONE HCL [Concomitant]
  5. RITALIN [Concomitant]
  6. HYDROMORPHONE HCL [Concomitant]
  7. LEVOXYL [Concomitant]

REACTIONS (26)
  - BACTERIAL INFECTION [None]
  - BLOOD CALCIUM DECREASED [None]
  - BLOOD CREATININE INCREASED [None]
  - BLOOD CULTURE POSITIVE [None]
  - BLOOD GLUCOSE INCREASED [None]
  - BLOOD POTASSIUM DECREASED [None]
  - BLOOD UREA INCREASED [None]
  - CONFUSIONAL STATE [None]
  - DECREASED ACTIVITY [None]
  - DEHYDRATION [None]
  - DYSPNOEA [None]
  - FAILURE TO THRIVE [None]
  - HAEMATOCRIT DECREASED [None]
  - HAEMOGLOBIN DECREASED [None]
  - HYPOTENSION [None]
  - INFECTION [None]
  - KLEBSIELLA BACTERAEMIA [None]
  - LEUKOPENIA [None]
  - LOSS OF CONSCIOUSNESS [None]
  - MULTIPLE MYELOMA [None]
  - NEUTROPENIC SEPSIS [None]
  - RESPIRATORY FAILURE [None]
  - RESPIRATORY TRACT INFECTION [None]
  - SEPSIS [None]
  - STAPHYLOCOCCAL INFECTION [None]
  - THROMBOCYTOPENIA [None]
